FAERS Safety Report 5786434-1 (Version None)
Quarter: 2008Q2

REPORT INFORMATION
  Report Type: 
  Country: None (occurrence: None)
  Receive Date: 20080624
  Receipt Date: 20080613
  Transmission Date: 20081010
  Serious: Yes (Other)
  Sender: FDA-Public Use
  Company Number: US-PFIZER INC-2008037210

PATIENT
  Sex: Female

DRUGS (3)
  1. XALATAN [Suspect]
     Indication: GLAUCOMA
  2. ZOCOR [Concomitant]
  3. SYNTHROID [Concomitant]

REACTIONS (5)
  - DRUG ADMINISTRATION ERROR [None]
  - EYE IRRITATION [None]
  - EYE OPERATION [None]
  - EYE PAIN [None]
  - INCORRECT DOSE ADMINISTERED [None]
